FAERS Safety Report 17720612 (Version 1)
Quarter: 2020Q2

REPORT INFORMATION
  Report Type: Spontaneous
  Country: US (occurrence: US)
  Receive Date: 20200428
  Receipt Date: 20200428
  Transmission Date: 20200714
  Serious: No
  Sender: FDA-Public Use
  Company Number: US-ROCHE-2369092

PATIENT
  Sex: Female
  Weight: 52.21 kg

DRUGS (3)
  1. LANOXIN [Concomitant]
     Active Substance: DIGOXIN
     Dosage: LANOXIN  MCG
     Route: 065
  2. AVASTIN [Suspect]
     Active Substance: BEVACIZUMAB
     Indication: NEOVASCULAR AGE-RELATED MACULAR DEGENERATION
     Route: 031
  3. PROPRANOLOL [Concomitant]
     Active Substance: PROPRANOLOL HYDROCHLORIDE
     Route: 065

REACTIONS (5)
  - Neovascular age-related macular degeneration [Unknown]
  - Vitreous floaters [Unknown]
  - Off label use [Unknown]
  - Eye pain [Unknown]
  - Intentional product use issue [Unknown]
